FAERS Safety Report 4607854-4 (Version None)
Quarter: 2005Q1

REPORT INFORMATION
  Report Type: 
  Country: None (occurrence: None)
  Receive Date: 20050311
  Receipt Date: 20050225
  Transmission Date: 20050727
  Serious: Yes (Hospitalization)
  Sender: FDA-Public Use
  Company Number: 2004AP01944

PATIENT
  Age: 64 Year
  Sex: Male

DRUGS (27)
  1. IRESSA [Suspect]
     Indication: NON-SMALL CELL LUNG CANCER
     Dosage: 250 MG DAILY PO
     Route: 048
     Dates: start: 20040226, end: 20040322
  2. CRAVIT [Suspect]
     Indication: RESPIRATORY TRACT INFECTION
     Dosage: 300 MG DAILY PO
     Route: 048
     Dates: start: 20040318, end: 20040323
  3. MEXITIL [Suspect]
     Indication: HYPOAESTHESIA
     Dosage: 300 MG DAILY PO
     Route: 048
     Dates: start: 20040319, end: 20040327
  4. PURSENNID [Concomitant]
  5. MUCOSAL [Concomitant]
  6. SELBEX [Concomitant]
  7. LOXONIN [Concomitant]
  8. ALOSENN [Concomitant]
  9. GASTER [Concomitant]
  10. PREDONINE [Concomitant]
  11. RIVOTRIL [Concomitant]
  12. ALDACTONE [Concomitant]
  13. BAKTAR [Concomitant]
  14. NEOSTELINGREEN [Concomitant]
  15. RINDERON-VG [Concomitant]
  16. RESTAMIN [Concomitant]
  17. DUROTEP    JANSSEN [Concomitant]
  18. OPSO [Concomitant]
  19. AMOXAN [Concomitant]
  20. VITAMEDIN S [Concomitant]
  21. RADIATION THERAPY [Concomitant]
  22. IMIPRAMINE HCL [Concomitant]
  23. PRIMPERAN TAB [Concomitant]
  24. INTENURSE [Concomitant]
  25. BROACT [Concomitant]
  26. LACTEC G [Concomitant]
  27. AMINOFLUID [Concomitant]

REACTIONS (20)
  - ANAEMIA [None]
  - BLOOD BETA-D-GLUCAN INCREASED [None]
  - CANCER PAIN [None]
  - CHEST X-RAY ABNORMAL [None]
  - CONDITION AGGRAVATED [None]
  - DYSPNOEA [None]
  - GENERAL PHYSICAL HEALTH DETERIORATION [None]
  - HYPOAESTHESIA [None]
  - HYPOVENTILATION [None]
  - INSOMNIA [None]
  - NAUSEA [None]
  - NON-SMALL CELL LUNG CANCER [None]
  - PLATELET COUNT DECREASED [None]
  - PNEUMOCYSTIS JIROVECI PNEUMONIA [None]
  - PYREXIA [None]
  - RASH [None]
  - SPUTUM RETENTION [None]
  - TACHYCARDIA [None]
  - VOMITING [None]
  - WHITE BLOOD CELL COUNT INCREASED [None]
